FAERS Safety Report 22186042 (Version 1)
Quarter: 2023Q2

REPORT INFORMATION
  Report Type: Spontaneous
  Country: DE (occurrence: DE)
  Receive Date: 20230407
  Receipt Date: 20230407
  Transmission Date: 20230721
  Serious: Yes (Congenital Anomaly, Other)
  Sender: FDA-Public Use
  Company Number: None

PATIENT
  Age: 1 Day
  Sex: Male
  Weight: 3 kg

DRUGS (1)
  1. ESCITALOPRAM [Suspect]
     Active Substance: ESCITALOPRAM OXALATE
     Indication: Depression
     Dosage: 15 [MG/D ]
     Route: 064
     Dates: start: 20210204, end: 20210406

REACTIONS (5)
  - Foetal exposure during pregnancy [Unknown]
  - Atrial septal defect [Unknown]
  - Choanal stenosis [Unknown]
  - Talipes [Not Recovered/Not Resolved]
  - Hand deformity [Unknown]

NARRATIVE: CASE EVENT DATE: 20211101
